FAERS Safety Report 7222596-7 (Version None)
Quarter: 2011Q1

REPORT INFORMATION
  Report Type: 
  Country: None (occurrence: None)
  Receive Date: 20110106
  Receipt Date: 20110106
  Transmission Date: 20110831
  Serious: Yes (Hospitalization, Other)
  Sender: FDA-Public Use
  Company Number: None

PATIENT
  Age: 12 Year
  Sex: Female
  Weight: 43.0917 kg

DRUGS (1)
  1. EX -LAX EXTRA STRENGTH [Suspect]
     Indication: CONSTIPATION
     Dosage: 25 MG 1 PO
     Route: 048
     Dates: start: 20101205, end: 20101205

REACTIONS (3)
  - ABDOMINAL DISCOMFORT [None]
  - PELVIC PAIN [None]
  - ABDOMINAL PAIN LOWER [None]
